FAERS Safety Report 18555435 (Version 2)
Quarter: 2021Q1

REPORT INFORMATION
  Report Type: Spontaneous
  Country: US (occurrence: US)
  Receive Date: 20201127
  Receipt Date: 20210203
  Transmission Date: 20210419
  Serious: No
  Sender: FDA-Public Use
  Company Number: US-TEVA-2020-US-1853707

PATIENT

DRUGS (1)
  1. CICLOPIROX ACTAVIS [Suspect]
     Active Substance: CICLOPIROX
     Route: 065

REACTIONS (2)
  - Therapeutic product effect incomplete [Unknown]
  - Incorrect product administration duration [Unknown]
